FAERS Safety Report 4351267-X (Version None)
Quarter: 2004Q2

REPORT INFORMATION
  Report Type: 
  Country: None (occurrence: None)
  Receive Date: 20040430
  Receipt Date: 20040430
  Transmission Date: 20050107
  Serious: Yes (Hospitalization)
  Sender: FDA-Public Use
  Company Number: None

PATIENT
  Age: 75 Year
  Sex: Male

DRUGS (7)
  1. ATENOLOL [Suspect]
     Indication: HYPERTENSION
  2. INSULIN [Concomitant]
  3. LASIX [Concomitant]
  4. RISPERIDONE [Concomitant]
  5. VALPROIC ACID [Concomitant]
  6. ZOCOR [Concomitant]
  7. HYTRIN [Concomitant]

REACTIONS (2)
  - DEHYDRATION [None]
  - SINUS BRADYCARDIA [None]
